FAERS Safety Report 8141681-9 (Version None)
Quarter: 2012Q1

REPORT INFORMATION
  Report Type: 
  Country: None (occurrence: None)
  Receive Date: 20120216
  Receipt Date: 20120209
  Transmission Date: 20120608
  Serious: Yes (Other)
  Sender: FDA-Public Use
  Company Number: PHHY2012DE011594

PATIENT
  Sex: Female

DRUGS (1)
  1. TOBI [Suspect]
     Dosage: 4 DF, BID
     Dates: start: 20111216, end: 20111231

REACTIONS (3)
  - COUGH [None]
  - NASAL OEDEMA [None]
  - HAEMOPTYSIS [None]
